FAERS Safety Report 18184022 (Version 2)
Quarter: 2020Q3

REPORT INFORMATION
  Report Type: Spontaneous
  Country: EG (occurrence: EG)
  Receive Date: 20200823
  Receipt Date: 20200909
  Transmission Date: 20201103
  Serious: Yes (Hospitalization, Other)
  Sender: FDA-Public Use
  Company Number: EG-ELI_LILLY_AND_COMPANY-EG202008005517

PATIENT
  Sex: Female

DRUGS (5)
  1. MARCAL [Concomitant]
     Indication: MUSCLE SPASMS
     Dosage: UNK
     Dates: start: 202003
  2. FORTEO [Suspect]
     Active Substance: TERIPARATIDE
     Indication: MUSCLE SPASMS
     Dosage: 20 UG, BID
     Route: 058
     Dates: start: 202002, end: 202003
  3. FORTEO [Suspect]
     Active Substance: TERIPARATIDE
     Dosage: 20 UG, DAILY
     Route: 058
     Dates: start: 202003
  4. ONE ALPHA [Concomitant]
     Active Substance: ALFACALCIDOL
     Indication: MUSCLE SPASMS
  5. FORTEO [Suspect]
     Active Substance: TERIPARATIDE
     Dosage: 20 UG, DAILY
     Route: 058

REACTIONS (7)
  - Facial discomfort [Unknown]
  - Blepharospasm [Unknown]
  - Incorrect product administration duration [Unknown]
  - Hand deformity [Recovering/Resolving]
  - Off label use [Not Recovered/Not Resolved]
  - Blood calcium decreased [Not Recovered/Not Resolved]
  - Prescribed overdose [Recovered/Resolved]

NARRATIVE: CASE EVENT DATE: 202002
